FAERS Safety Report 12131057 (Version 1)
Quarter: 2016Q1

REPORT INFORMATION
  Report Type: Spontaneous
  Country: US (occurrence: US)
  Receive Date: 20160301
  Receipt Date: 20160301
  Transmission Date: 20160526
  Serious: Yes (Other)
  Sender: FDA-Public Use
  Company Number: US-PFIZER INC-2016123300

PATIENT
  Age: 57 Year
  Sex: Female

DRUGS (1)
  1. CHANTIX [Suspect]
     Active Substance: VARENICLINE TARTRATE
     Indication: SMOKING CESSATION THERAPY
     Dosage: UNK

REACTIONS (8)
  - Irritability [Unknown]
  - Impatience [Unknown]
  - Apathy [Unknown]
  - Depression [Unknown]
  - Anger [Unknown]
  - Hostility [Unknown]
  - Condition aggravated [Unknown]
  - Aggression [Unknown]
